FAERS Safety Report 8821757 (Version 4)
Quarter: 2013Q4

REPORT INFORMATION
  Report Type: Report from Study
  Country: JP (occurrence: JP)
  Receive Date: 20121002
  Receipt Date: 20131121
  Transmission Date: 20140711
  Serious: Yes (Other)
  Sender: FDA-Public Use
  Company Number: JP-GILEAD-2012-0060583

PATIENT
  Age: 62 Year
  Sex: Male
  Weight: 63 kg

DRUGS (19)
  1. AMBRISENTAN [Suspect]
     Indication: PULMONARY HYPERTENSION
     Dosage: 10 MG, QD
     Route: 048
     Dates: start: 20120622, end: 20120823
  2. AMBRISENTAN [Suspect]
     Dosage: 2.5 MG, QD
     Route: 048
     Dates: start: 20120406, end: 20120426
  3. AMBRISENTAN [Suspect]
     Dosage: 5 MG, QD
     Route: 048
     Dates: start: 20120427, end: 20120524
  4. AMBRISENTAN [Suspect]
     Dosage: 7.5 MG, QD
     Route: 048
     Dates: start: 20120525, end: 20120621
  5. AMBRISENTAN [Suspect]
     Dosage: 5 MG, QD
     Route: 048
     Dates: start: 20120824, end: 20120913
  6. AMBRISENTAN [Suspect]
     Dosage: 7.5 MG, QD
     Route: 048
     Dates: start: 20120914
  7. ADCIRCA [Concomitant]
     Indication: PULMONARY HYPERTENSION
     Dosage: 40MG PER DAY
     Route: 048
  8. ADCIRCA [Concomitant]
     Dosage: 20MG TWICE PER DAY
     Route: 048
     Dates: start: 20120720
  9. FUROSEMIDE [Concomitant]
     Indication: RIGHT VENTRICULAR FAILURE
     Dosage: 60MG TWICE PER DAY
     Route: 048
     Dates: start: 20120720
  10. ZYLORIC [Concomitant]
     Indication: HYPERURICAEMIA
     Dosage: 50MG PER DAY
     Route: 048
     Dates: start: 20120720, end: 20130314
  11. ZYLORIC [Concomitant]
     Dosage: 50MG PER DAY
     Route: 048
     Dates: start: 20120720, end: 20130314
  12. WARFARIN [Concomitant]
     Indication: DEEP VEIN THROMBOSIS
     Dosage: 2.75MG PER DAY
     Route: 048
     Dates: start: 20120720
  13. TAKEPRON [Concomitant]
     Indication: GASTROOESOPHAGEAL REFLUX DISEASE
     Dosage: 30MG PER DAY
     Route: 048
     Dates: start: 20120720
  14. METHYCOBAL [Concomitant]
     Dosage: 500MCG THREE TIMES PER DAY
     Route: 048
     Dates: start: 20120720
  15. JUVELA N [Concomitant]
     Dosage: 100MG THREE TIMES PER DAY
     Route: 048
     Dates: start: 20120720
  16. LAC-B [Concomitant]
     Dosage: 1G THREE TIMES PER DAY
     Route: 048
     Dates: start: 20120720
  17. VERAPAMIL HYDROCHLORIDE [Concomitant]
     Dosage: 40MG THREE TIMES PER DAY
     Route: 048
     Dates: start: 20120720
  18. VASOLAN                            /00014302/ [Concomitant]
     Dosage: 40MG THREE TIMES PER DAY
     Route: 048
     Dates: start: 20120720
  19. FEBURIC [Concomitant]
     Indication: HYPERURICAEMIA
     Route: 048
     Dates: start: 20130315

REACTIONS (5)
  - Gamma-glutamyltransferase increased [Recovering/Resolving]
  - Drug-induced liver injury [Unknown]
  - Blood alkaline phosphatase increased [Recovering/Resolving]
  - Cholelithiasis [Unknown]
  - Liver disorder [Recovering/Resolving]
